FAERS Safety Report 4751386-X (Version None)
Quarter: 2005Q3

REPORT INFORMATION
  Report Type: 
  Country: None (occurrence: None)
  Receive Date: 20050822
  Receipt Date: 20050812
  Transmission Date: 20060218
  Serious: No
  Sender: FDA-Public Use
  Company Number: FEI2005-2007

PATIENT
  Age: 45 Year
  Sex: Female

DRUGS (4)
  1. INTRAUTERINE COPPER CONTRACEPTIVE [Suspect]
     Indication: CONTRACEPTION
     Dosage: SEE IMAGE
     Route: 015
     Dates: start: 19970101, end: 19890101
  2. INTRAUTERINE COPPER CONTRACEPTIVE [Suspect]
     Indication: CONTRACEPTION
     Dosage: SEE IMAGE
     Route: 015
     Dates: start: 20020101, end: 20050401
  3. INTRAUTERINE COPPER CONTRACEPTIVE [Suspect]
     Indication: CONTRACEPTION
     Dosage: SEE IMAGE
     Route: 015
     Dates: start: 20050603
  4. WELLBUTRIN [Concomitant]

REACTIONS (8)
  - ACTINOMYCOSIS [None]
  - IUCD COMPLICATION [None]
  - MENORRHAGIA [None]
  - METRORRHAGIA [None]
  - POST PROCEDURAL COMPLICATION [None]
  - SMEAR CERVIX ABNORMAL [None]
  - UTERINE POLYP [None]
  - VAGINAL HAEMORRHAGE [None]
